FAERS Safety Report 25508576 (Version 1)
Quarter: 2025Q3

REPORT INFORMATION
  Report Type: Spontaneous
  Country: IN (occurrence: IN)
  Receive Date: 20250703
  Receipt Date: 20250703
  Transmission Date: 20251021
  Serious: Yes (Other)
  Sender: ROCHE
  Company Number: IN-002147023-NVSC2025IN103421

PATIENT
  Sex: Male

DRUGS (1)
  1. RANIBIZUMAB [Suspect]
     Active Substance: RANIBIZUMAB
     Indication: Diabetic retinal oedema
     Route: 050
     Dates: start: 20250324

REACTIONS (8)
  - Retinal haemorrhage [Unknown]
  - Foveal reflex abnormal [Unknown]
  - Posterior capsule opacification [Unknown]
  - Vitreous floaters [Unknown]
  - Visual impairment [Unknown]
  - Vision blurred [Unknown]
  - Lacrimation increased [Unknown]
  - Condition aggravated [Unknown]
